FAERS Safety Report 6656027-2 (Version None)
Quarter: 2010Q1

REPORT INFORMATION
  Report Type: 
  Country: None (occurrence: None)
  Receive Date: 20100329
  Receipt Date: 20100125
  Transmission Date: 20100710
  Serious: Yes (Other)
  Sender: FDA-Public Use
  Company Number: CA-GENENTECH-299637

PATIENT
  Sex: Male
  Weight: 60 kg

DRUGS (1)
  1. OMALIZUMAB [Suspect]
     Indication: ASTHMA
     Dosage: 300 MG, Q2W
     Route: 058
     Dates: start: 20060222

REACTIONS (3)
  - COLONOSCOPY [None]
  - INTESTINAL POLYP [None]
  - POLYPECTOMY [None]
